FAERS Safety Report 4518131-4 (Version None)
Quarter: 2004Q4

REPORT INFORMATION
  Report Type: 
  Country: None (occurrence: None)
  Receive Date: 20041130
  Receipt Date: 20041117
  Transmission Date: 20050328
  Serious: Yes (Disabling)
  Sender: FDA-Public Use
  Company Number: 2004-120831-NL

PATIENT
  Age: 47 Year
  Sex: Female

DRUGS (9)
  1. VECURONIUM BROMIDE [Suspect]
     Indication: MUSCLE RELAXANT THERAPY
     Dosage: 8 MG ONCE INTRAVENOUS (NOS)
     Route: 042
     Dates: start: 20041205, end: 20031205
  2. PROPOFOL [Suspect]
     Indication: SEDATION
     Dosage: 80 MG ONCE INTRAVENOUS (NOS) / INTRAVENOUS DRIP
     Route: 042
  3. FENTANYL CITRATE [Suspect]
     Indication: SEDATION
     Dosage: 50 UG ONCE INTRAVENOUS (NOS)
     Route: 042
     Dates: start: 20031205, end: 20031205
  4. SEVOFLURANE [Suspect]
     Indication: ANALGESIC EFFECT
     Dosage: RESPIRATORY (INHALATION)
     Route: 055
     Dates: start: 20031205, end: 20031205
  5. SEVOFLURANE [Suspect]
     Indication: SEDATION
     Dosage: RESPIRATORY (INHALATION)
     Route: 055
     Dates: start: 20031205, end: 20031205
  6. OXYGEN [Concomitant]
  7. NITROUS OXIDE [Concomitant]
  8. EPHEDRIN [Concomitant]
  9. ATROPINE SULFATE [Concomitant]

REACTIONS (6)
  - APNOEA [None]
  - DYSTROPHIA MYOTONICA [None]
  - HYPOVENTILATION [None]
  - MUSCULAR WEAKNESS [None]
  - POSTOPERATIVE RESPIRATORY DISTRESS [None]
  - SPUTUM RETENTION [None]
